FAERS Safety Report 6452253-6 (Version None)
Quarter: 2009Q4

REPORT INFORMATION
  Report Type: 
  Country: None (occurrence: None)
  Receive Date: 20091123
  Receipt Date: 20091118
  Transmission Date: 20100525
  Serious: Yes (Hospitalization)
  Sender: FDA-Public Use
  Company Number: US-GENENTECH-294581

PATIENT
  Sex: Female

DRUGS (7)
  1. BLINDED BEVACIZUMAB [Suspect]
     Indication: OVARIAN CANCER
     Dosage: 1590 MG, Q21D
     Route: 042
     Dates: start: 20090922
  2. CARBOPLATIN [Suspect]
     Indication: OVARIAN CANCER
     Dosage: 1590 MG, Q21D
     Route: 042
     Dates: start: 20090922
  3. BLINDED GEMCITABINE [Suspect]
     Indication: OVARIAN CANCER
     Dosage: 1590 MG, Q21D
     Route: 042
     Dates: start: 20090922
  4. BLINDED PLACEBO [Suspect]
     Indication: OVARIAN CANCER
     Dosage: 1590 MG, Q21D
     Route: 042
     Dates: start: 20090922
  5. GEMCITABINE [Suspect]
     Indication: OVARIAN CANCER
     Dosage: 2120 MG, DAY1+8/Q3W
     Route: 042
     Dates: start: 20090922
  6. CARBOPLATIN [Suspect]
     Indication: OVARIAN CANCER
     Dosage: 364 MG, Q21D
     Route: 042
     Dates: start: 20090922
  7. RED BLOOD CELLS [Concomitant]
     Indication: DRUG USE FOR UNKNOWN INDICATION
     Dosage: 4 UNIT, UNK
     Dates: start: 20091116

REACTIONS (1)
  - ANAEMIA [None]
